FAERS Safety Report 9422158 (Version 1)
Quarter: 2013Q2

REPORT INFORMATION
  Report Type: Spontaneous
  Country: US (occurrence: None)
  Receive Date: 20130625
  Receipt Date: 20130625
  Transmission Date: 20140414
  Serious: Yes (Other)
  Sender: FDA-Public Use
  Company Number: None

PATIENT
  Age: 66 Year
  Sex: Male
  Weight: 92.99 kg

DRUGS (9)
  1. AMOXICILLIN [Suspect]
     Indication: NASOPHARYNGITIS
     Route: 048
     Dates: start: 20130704, end: 20130706
  2. AMOXICILLIN [Suspect]
     Indication: INFLUENZA
     Route: 048
     Dates: start: 20130704, end: 20130706
  3. AMOXICILLIN [Suspect]
     Indication: TONSILLAR HYPERTROPHY
     Route: 048
     Dates: start: 20130704, end: 20130706
  4. AMOXICILLIN [Suspect]
     Indication: OROPHARYNGEAL PAIN
     Route: 048
     Dates: start: 20130704, end: 20130706
  5. AMOXICILLIN [Suspect]
     Indication: INFECTION
     Route: 048
     Dates: start: 20130704, end: 20130706
  6. VITAMIN SUPPLEMENT [Concomitant]
  7. CENTRUM SILVER C,D,E [Concomitant]
  8. NYQUIL [Concomitant]
  9. HALLS [Concomitant]

REACTIONS (7)
  - Haemorrhage [None]
  - Testicular swelling [None]
  - Self-medication [None]
  - Expired drug administered [None]
  - Groin pain [None]
  - Musculoskeletal discomfort [None]
  - Blood urine present [None]
